FAERS Safety Report 6032375-4 (Version None)
Quarter: 2008Q4

REPORT INFORMATION
  Report Type: 
  Country: None (occurrence: None)
  Receive Date: 20081222
  Receipt Date: 20080910
  Transmission Date: 20090506
  Serious: No
  Sender: FDA-Public Use
  Company Number: US-WYE-H05960408

PATIENT
  Age: 90 Year
  Sex: Female
  Weight: 52.66 kg

DRUGS (9)
  1. PRISTIQ [Suspect]
     Indication: DEPRESSION
     Dosage: 50 MG 1X PER 1 DAY, ORAL
     Route: 048
     Dates: start: 20080905
  2. PRISTIQ [Suspect]
     Indication: PANIC ATTACK
     Dosage: 50 MG 1X PER 1 DAY, ORAL
     Route: 048
     Dates: start: 20080905
  3. DIGOXIN [Concomitant]
  4. CADUET (AMLODIPINE BESILATE/ATORVASTATIN CALCIUM) [Concomitant]
  5. ACETYLSALICYLIC ACID SRT [Concomitant]
  6. VITAMIN E [Concomitant]
  7. ASCORBIC ACID [Concomitant]
  8. CALCIUM (CALCIUM) [Concomitant]
  9. VITAMINS WITH MINERALS (VITAMINS WITH MINERALS) [Concomitant]

REACTIONS (3)
  - ABNORMAL DREAMS [None]
  - CONSTIPATION [None]
  - INSOMNIA [None]
